FAERS Safety Report 10004209 (Version 1)
Quarter: 2014Q1

REPORT INFORMATION
  Report Type: Spontaneous
  Country: US (occurrence: US)
  Receive Date: 20140312
  Receipt Date: 20140312
  Transmission Date: 20141002
  Serious: No
  Sender: FDA-Public Use
  Company Number: US-009507513-1403USA003376

PATIENT
  Age: 72 Year
  Sex: Female

DRUGS (2)
  1. ASMANEX TWISTHALER [Suspect]
     Dosage: 2 DF, QPM
     Route: 055
     Dates: start: 20140303, end: 20140305
  2. ASMANEX TWISTHALER [Suspect]
     Dosage: 2 DF, QPM
     Route: 055
     Dates: start: 20140303, end: 20140305

REACTIONS (5)
  - Syncope [Not Recovered/Not Resolved]
  - Drug dose omission [Unknown]
  - Drug ineffective [Unknown]
  - Product quality issue [Unknown]
  - Expired drug administered [Unknown]
